FAERS Safety Report 26141295 (Version 1)
Quarter: 2025Q4

REPORT INFORMATION
  Report Type: Spontaneous
  Country: US (occurrence: None)
  Receive Date: 20251210
  Receipt Date: 20251210
  Transmission Date: 20260117
  Serious: Yes (Death)
  Sender: FDA-CTU
  Company Number: None

PATIENT
  Age: 91 Year
  Sex: Female

DRUGS (6)
  1. BOTOX [Suspect]
     Active Substance: ONABOTULINUMTOXINA
     Indication: Torticollis
     Dosage: OTHER STRENGTH : 100UNIT;?OTHER ROUTE : INJECTION;?FREQ: INJECT 100 UNITS IN THE MUSCLE INTO AFFECTED NECK MUSCLES EVERY 3 MONTHS
     Route: 050
     Dates: start: 20151120
  2. BAYER WOMENS TAB 81-300MG [Concomitant]
  3. DIAZEPAM TAB 2MG [Concomitant]
  4. PRESERVISION CAP AREDS [Concomitant]
  5. TRIHEXYPHEN TAB 2MG [Concomitant]
  6. TYLENOL TAB 50MG [Concomitant]

REACTIONS (1)
  - Death [None]

NARRATIVE: CASE EVENT DATE: 20250910
